FAERS Safety Report 7430833-9 (Version None)
Quarter: 2011Q2

REPORT INFORMATION
  Report Type: 
  Country: None (occurrence: None)
  Receive Date: 20110421
  Receipt Date: 20110414
  Transmission Date: 20111010
  Serious: Yes (Death)
  Sender: FDA-Public Use
  Company Number: US-MPIJNJ-2011-01557

PATIENT
  Sex: Female

DRUGS (1)
  1. VELCADE [Suspect]
     Indication: OVARIAN CANCER

REACTIONS (2)
  - DEATH [None]
  - OFF LABEL USE [None]
